FAERS Safety Report 9786261 (Version 1)
Quarter: 2013Q4

REPORT INFORMATION
  Report Type: Spontaneous
  Country: IN (occurrence: None)
  Receive Date: 20131224
  Receipt Date: 20131224
  Transmission Date: 20140711
  Serious: Yes (Hospitalization)
  Sender: FDA-Public Use
  Company Number: FK201305461

PATIENT
  Age: 16 Year
  Sex: Male

DRUGS (3)
  1. PROPOFOL [Suspect]
     Indication: INDUCTION OF ANAESTHESIA
     Dosage: 100UG/KG/MIN, INTRVENOUS (NOT OTHERWISE SPECIFIED)
  2. FENTANYL (FENTANYL) [Concomitant]
  3. VECURONIUM BROMIDE (VECURONIUM BROMIDE) [Concomitant]

REACTIONS (3)
  - Crystal urine present [None]
  - Chromaturia [None]
  - Urine abnormality [None]
